FAERS Safety Report 12979140 (Version 2)
Quarter: 2016Q4

REPORT INFORMATION
  Report Type: Report from Study
  Country: BR (occurrence: BR)
  Receive Date: 20161128
  Receipt Date: 20161204
  Transmission Date: 20170207
  Serious: Yes (Hospitalization, Other)
  Sender: FDA-Public Use
  Company Number: BR-GLAXOSMITHKLINE-BR2016GSK174479

PATIENT
  Age: 74 Year
  Sex: Female
  Weight: 73 kg

DRUGS (5)
  1. CATAFLAM [Suspect]
     Active Substance: DICLOFENAC POTASSIUM
     Indication: PRODUCT USED FOR UNKNOWN INDICATION
  2. DICLOFENAC DIETHYLAMMONIUM SALT [Suspect]
     Active Substance: DICLOFENAC DIETHYLAMINE
     Indication: PRODUCT USED FOR UNKNOWN INDICATION
  3. FORADIL [Suspect]
     Active Substance: FORMOTEROL FUMARATE
     Indication: EMPHYSEMA
     Dosage: 1 DF, BID
     Route: 055
  4. FLUIR [Suspect]
     Active Substance: FORMOTEROL FUMARATE
     Indication: EMPHYSEMA
     Dosage: UNK, Z, USES MORE AT NIGHT
  5. FORADIL [Suspect]
     Active Substance: FORMOTEROL FUMARATE
     Indication: DYSPNOEA
     Dosage: 1 DF, TID
     Route: 055

REACTIONS (23)
  - Feeling abnormal [Unknown]
  - Cough [Not Recovered/Not Resolved]
  - Wrong technique in product usage process [Unknown]
  - Faecaloma [Unknown]
  - Haemorrhage [Unknown]
  - Product use issue [Unknown]
  - Back pain [Recovered/Resolved]
  - Paraesthesia [Not Recovered/Not Resolved]
  - Abdominal hernia [Not Recovered/Not Resolved]
  - Gait disturbance [Unknown]
  - Emphysema [Not Recovered/Not Resolved]
  - Malaise [Unknown]
  - Expired product administered [Unknown]
  - Drug dependence [Unknown]
  - Feeling cold [Recovered/Resolved]
  - Asphyxia [Unknown]
  - Fear [Not Recovered/Not Resolved]
  - Pain [Recovering/Resolving]
  - Limb discomfort [Unknown]
  - Gastrointestinal carcinoma [Recovered/Resolved]
  - Faeces hard [Recovered/Resolved]
  - Dyspnoea [Unknown]
  - Fatigue [Unknown]

NARRATIVE: CASE EVENT DATE: 201511
